FAERS Safety Report 14713728 (Version 1)
Quarter: 2018Q2

REPORT INFORMATION
  Report Type: Spontaneous
  Country: GB (occurrence: GB)
  Receive Date: 20180404
  Receipt Date: 20180404
  Transmission Date: 20180711
  Serious: Yes (Life-Threatening)
  Sender: FDA-Public Use
  Company Number: GB-TEVA-2018-GB-876883

PATIENT
  Age: 71 Year
  Sex: Male
  Weight: 69.39 kg

DRUGS (6)
  1. BISOPROLOL [Concomitant]
     Active Substance: BISOPROLOL
     Route: 065
  2. SIMVASTATIN. [Concomitant]
     Active Substance: SIMVASTATIN
     Route: 065
  3. CLOPIDOGREL [Concomitant]
     Active Substance: CLOPIDOGREL BISULFATE
     Route: 065
  4. ACETYLSALICYLIC ACID [Concomitant]
     Active Substance: ASPIRIN
     Route: 065
  5. LANSOPRAZOLE. [Suspect]
     Active Substance: LANSOPRAZOLE
     Indication: GASTROOESOPHAGEAL REFLUX DISEASE
     Route: 048
  6. RAMIPRIL. [Concomitant]
     Active Substance: RAMIPRIL
     Route: 065

REACTIONS (10)
  - Ageusia [Unknown]
  - Hallucination, visual [Recovered/Resolved with Sequelae]
  - Dysgeusia [Unknown]
  - Heart rate decreased [Unknown]
  - Eye pain [Unknown]
  - Tachycardia [Recovered/Resolved with Sequelae]
  - Hypopnoea [Recovered/Resolved with Sequelae]
  - Dizziness [Unknown]
  - Malaise [Recovered/Resolved with Sequelae]
  - Depression [Recovering/Resolving]
